FAERS Safety Report 8285941-X (Version None)
Quarter: 2012Q2

REPORT INFORMATION
  Report Type: 
  Country: None (occurrence: None)
  Receive Date: 20120415
  Receipt Date: 20120405
  Transmission Date: 20120825
  Serious: Yes (Hospitalization, Other)
  Sender: FDA-Public Use
  Company Number: JP-VERTEX PHARMACEUTICALS INC.-AE-2012-002423

PATIENT
  Age: 62 Year
  Sex: Male

DRUGS (8)
  1. REBETOL [Concomitant]
     Indication: HEPATITIS C
     Route: 048
     Dates: start: 20120210, end: 20120317
  2. CLOBETASOL PROPIONATE [Concomitant]
  3. ALLOPURINOL [Concomitant]
  4. RIKKUNSHI-TO [Concomitant]
  5. BETAMAC [Concomitant]
  6. GASMOTIN [Concomitant]
  7. PEG-INTRON [Concomitant]
     Indication: HEPATITIS C
     Route: 058
     Dates: start: 20120210, end: 20120317
  8. TELAVIC (TELAPREVIR) [Suspect]
     Indication: HEPATITIS C
     Route: 048
     Dates: start: 20120210, end: 20120317

REACTIONS (6)
  - RASH [None]
  - DEPRESSIVE SYMPTOM [None]
  - BLOOD URIC ACID INCREASED [None]
  - ANAEMIA [None]
  - DUODENAL ULCER [None]
  - BLOOD CREATININE INCREASED [None]
